FAERS Safety Report 19801386 (Version 2)
Quarter: 2021Q3

REPORT INFORMATION
  Report Type: Report from Study
  Country: FR (occurrence: FR)
  Receive Date: 20210907
  Receipt Date: 20210914
  Transmission Date: 20211014
  Serious: Yes (Death, Hospitalization)
  Sender: FDA-Public Use
  Company Number: FR-EXELIXIS-XL18421043292

PATIENT
  Age: 74 Year
  Sex: Male
  Weight: 54 kg

DRUGS (14)
  1. CARDENSIEL [Concomitant]
     Active Substance: BISOPROLOL FUMARATE
  2. INIPOMP [Concomitant]
     Active Substance: PANTOPRAZOLE SODIUM
  3. ELIGARD [Concomitant]
     Active Substance: LEUPROLIDE ACETATE
  4. CACIT D3 [Concomitant]
     Active Substance: CALCIUM\CHOLECALCIFEROL
  5. LOPERAMIDE [Concomitant]
     Active Substance: LOPERAMIDE
  6. DIFFU K [Concomitant]
     Active Substance: POTASSIUM CHLORIDE
  7. XL184 [Suspect]
     Active Substance: CABOZANTINIB
     Indication: HORMONE-REFRACTORY PROSTATE CANCER
     Dosage: 60 MG, QD
     Route: 048
     Dates: start: 20210223
  8. CORENITEC [Concomitant]
     Active Substance: ENALAPRIL\HYDROCHLOROTHIAZIDE
  9. LIPANTHYL [Concomitant]
     Active Substance: FENOFIBRATE
  10. NUTRITIONAL SUPPLEMENT [Concomitant]
     Active Substance: DIETARY SUPPLEMENT
  11. XL184 [Suspect]
     Active Substance: CABOZANTINIB
     Dosage: 20 MG, QD
     Route: 048
     Dates: start: 20210721
  12. XGEVA [Concomitant]
     Active Substance: DENOSUMAB
  13. MAG [Concomitant]
  14. OROKEN [Concomitant]
     Active Substance: CEFIXIME

REACTIONS (1)
  - Dyspnoea [Fatal]

NARRATIVE: CASE EVENT DATE: 20210802
